FAERS Safety Report 6658688-0 (Version None)
Quarter: 2010Q1

REPORT INFORMATION
  Report Type: 
  Country: None (occurrence: None)
  Receive Date: 20100330
  Receipt Date: 20100318
  Transmission Date: 20100710
  Serious: Yes (Hospitalization)
  Sender: FDA-Public Use
  Company Number: PHEH2010US03189

PATIENT
  Sex: Female
  Weight: 81.65 kg

DRUGS (1)
  1. EXJADE [Suspect]
     Indication: IRON METABOLISM DISORDER
     Dosage: 1500 MG, QD
     Route: 048
     Dates: start: 20080501

REACTIONS (2)
  - BLOOD COUNT ABNORMAL [None]
  - PLATELET COUNT DECREASED [None]
